FAERS Safety Report 5121159-7 (Version None)
Quarter: 2006Q4

REPORT INFORMATION
  Report Type: 
  Country: None (occurrence: None)
  Receive Date: 20061002
  Receipt Date: 20060914
  Transmission Date: 20070319
  Serious: Yes (Death)
  Sender: FDA-Public Use
  Company Number: DSA_28753_2006

PATIENT
  Age: 61 Year

DRUGS (3)
  1. ENALAPRIL MALEATE [Suspect]
     Dosage: DF PO
     Route: 048
  2. VALPROIC ACID [Suspect]
     Dosage: DF PO
     Route: 048
  3. ACETAMINOPHEN [Suspect]
     Dosage: DF, PO
     Route: 048

REACTIONS (2)
  - COMPLETED SUICIDE [None]
  - INCORRECT DOSE ADMINISTERED [None]
